FAERS Safety Report 7309942-0 (Version None)
Quarter: 2011Q1

REPORT INFORMATION
  Report Type: 
  Country: None (occurrence: None)
  Receive Date: 20110224
  Receipt Date: 20110210
  Transmission Date: 20110831
  Serious: Yes (Life-Threatening, Hospitalization)
  Sender: FDA-Public Use
  Company Number: GB-CELGENEUS-167-C5013-10111298

PATIENT
  Sex: Female

DRUGS (21)
  1. BUTRANS [Concomitant]
     Dosage: 5 MCG/HR
     Route: 062
     Dates: start: 20101108
  2. OXYGEN [Concomitant]
     Route: 065
     Dates: start: 20101101
  3. BUTRANS [Concomitant]
     Dosage: 5 MCG/H
     Route: 062
     Dates: start: 20101105, end: 20101106
  4. PAMIDRONATE DISODIUM [Concomitant]
     Indication: BONE PAIN
  5. DOCUSATE SODIUM [Concomitant]
     Route: 050
     Dates: start: 20101113
  6. LORATADINE [Concomitant]
     Route: 048
  7. ACICLOVIR [Concomitant]
     Indication: PROPHYLAXIS
     Route: 048
     Dates: start: 20101101
  8. TRAMADOL HYDROCHLORIDE [Concomitant]
     Indication: BACK PAIN
     Route: 048
     Dates: start: 20100208, end: 20101101
  9. CROTAMITON [Concomitant]
     Indication: PRURITUS
     Route: 061
  10. IV FLUIDS [Concomitant]
     Route: 051
     Dates: start: 20101101
  11. CC-5013 [Suspect]
     Indication: MULTIPLE MYELOMA
     Route: 048
     Dates: start: 20101101, end: 20101108
  12. PAMIDRONATE DISODIUM [Concomitant]
     Route: 051
     Dates: start: 20091203
  13. GLYCERIN [Concomitant]
     Indication: CONSTIPATION
     Dosage: 1-2 SUPPOSITORIES
     Route: 054
     Dates: start: 20101108
  14. DEXAMETHASONE [Suspect]
     Indication: MULTIPLE MYELOMA
     Route: 065
     Dates: start: 20101101, end: 20101114
  15. CALCICHEW D3 FORTE [Concomitant]
     Route: 048
     Dates: start: 20100208, end: 20101101
  16. ALLOPURINOL [Concomitant]
     Indication: PROPHYLAXIS
     Route: 048
     Dates: start: 20101101
  17. LANSOPRAZOLE [Concomitant]
     Route: 048
     Dates: start: 20101101
  18. SEPTRIN [Concomitant]
     Indication: INFECTION PROPHYLAXIS
     Route: 048
     Dates: start: 20101101
  19. DOCUSATE SODIUM [Concomitant]
     Indication: CONSTIPATION
     Route: 048
     Dates: start: 20101108
  20. BUTRANS [Concomitant]
     Dosage: 5 MCG/H
     Route: 062
     Dates: end: 20101103
  21. ORAMORPH SR [Concomitant]
     Route: 048

REACTIONS (5)
  - RESPIRATORY FAILURE [None]
  - DYSPNOEA [None]
  - BACK PAIN [None]
  - RENAL FAILURE ACUTE [None]
  - SEPSIS [None]
